FAERS Safety Report 6788592-9 (Version None)
Quarter: 2010Q2

REPORT INFORMATION
  Report Type: 
  Country: None (occurrence: None)
  Receive Date: 20100623
  Receipt Date: 20080527
  Transmission Date: 20101027
  Serious: No
  Sender: FDA-Public Use
  Company Number: US-PFIZER INC-2008024079

PATIENT
  Sex: Female
  Weight: 65.909 kg

DRUGS (3)
  1. CADUET [Suspect]
     Indication: HYPERTENSION
     Dosage: 10/20 MG TDD:10/20 MG
     Route: 048
     Dates: start: 20071212
  2. CADUET [Suspect]
     Indication: BLOOD CHOLESTEROL INCREASED
  3. CADUET [Suspect]
     Indication: LOW DENSITY LIPOPROTEIN INCREASED

REACTIONS (2)
  - JOINT SWELLING [None]
  - OEDEMA PERIPHERAL [None]
